FAERS Safety Report 5445149-X (Version None)
Quarter: 2007Q3

REPORT INFORMATION
  Report Type: 
  Country: None (occurrence: None)
  Receive Date: 20070906
  Receipt Date: 20070830
  Transmission Date: 20080115
  Serious: Yes (Other)
  Sender: FDA-Public Use
  Company Number: FR-SANOFI-SYNTHELABO-A02200702567

PATIENT
  Age: 75 Year
  Sex: Female

DRUGS (18)
  1. LYRICA [Suspect]
     Indication: NEUROPATHY
     Route: 048
     Dates: start: 20070301
  2. CORTANCYL [Suspect]
     Indication: RHEUMATOID ARTHRITIS
     Route: 048
     Dates: start: 19870101
  3. LEVOTHYROX [Suspect]
     Indication: SECONDARY HYPOTHYROIDISM
     Route: 048
     Dates: start: 19890101
  4. AROMASINE [Suspect]
     Indication: BREAST CANCER METASTATIC
     Route: 048
     Dates: start: 20060901
  5. KREDEX [Suspect]
     Indication: CARDIAC FAILURE
     Route: 048
     Dates: start: 20051201
  6. PERINDOPRIL ERBUMINE [Suspect]
     Indication: HYPERTENSION
     Route: 048
  7. ZOMETA [Suspect]
     Indication: BREAST CANCER METASTATIC
     Dosage: UNK
     Route: 042
     Dates: start: 20050901, end: 20070630
  8. PLAVIX [Suspect]
     Indication: PERIPHERAL ARTERIAL OCCLUSIVE DISEASE
     Route: 048
     Dates: start: 20040101
  9. CALCIDOSE [Concomitant]
     Indication: OSTEOPOROSIS
     Dosage: UNK
     Route: 048
     Dates: start: 20070101
  10. AROMASINE [Concomitant]
     Dosage: UNK
     Route: 048
     Dates: start: 20060901
  11. FEMARA [Concomitant]
     Indication: BREAST CANCER METASTATIC
     Dosage: UNK
     Route: 048
     Dates: start: 20051201, end: 20060901
  12. PARACETAMOL [Concomitant]
     Dosage: UNK
     Route: 048
     Dates: start: 20050901
  13. ACTISKENAN [Concomitant]
     Indication: BREAST CANCER METASTATIC
     Dosage: UNK
     Route: 048
     Dates: start: 20050901
  14. DUROGESIC [Concomitant]
     Indication: BREAST CANCER METASTATIC
     Route: 062
     Dates: start: 20050901
  15. HERCEPTIN [Concomitant]
     Indication: BREAST CANCER METASTATIC
     Dosage: UNK
     Route: 042
     Dates: start: 20050901, end: 20051201
  16. NAVELBINE [Concomitant]
     Indication: BREAST CANCER METASTATIC
     Dosage: UNK
     Route: 065
     Dates: start: 20050901, end: 20051201
  17. TARDYFERON [Concomitant]
     Indication: DRUG USE FOR UNKNOWN INDICATION
     Dosage: UNK
     Route: 048
  18. POTASSIUM CHLORIDE [Concomitant]
     Indication: DRUG USE FOR UNKNOWN INDICATION
     Dosage: UNK
     Route: 048

REACTIONS (1)
  - OSTEONECROSIS [None]
